FAERS Safety Report 10033938 (Version 2)
Quarter: 2014Q2

REPORT INFORMATION
  Report Type: Spontaneous
  Country: GB (occurrence: GB)
  Receive Date: 20140325
  Receipt Date: 20140416
  Transmission Date: 20141212
  Serious: Yes (Other)
  Sender: FDA-Public Use
  Company Number: GB-BRISTOL-MYERS SQUIBB COMPANY-20508198

PATIENT
  Age: 86 Year
  Sex: Female

DRUGS (3)
  1. ELIQUIS [Suspect]
     Indication: CEREBROVASCULAR ACCIDENT PROPHYLAXIS
     Dosage: REDUCED TO 2.5 MG TWICE DAILY ,ONGOING
  2. DIAZEPAM [Concomitant]
  3. DULOXETINE HCL [Concomitant]

REACTIONS (2)
  - Fall [Unknown]
  - Haemorrhage [Recovered/Resolved]
